FAERS Safety Report 5332756-8 (Version None)
Quarter: 2007Q2

REPORT INFORMATION
  Report Type: 
  Country: None (occurrence: None)
  Receive Date: 20070523
  Receipt Date: 20070511
  Transmission Date: 20071010
  Serious: Yes (Hospitalization)
  Sender: FDA-Public Use
  Company Number: SE-PFIZER INC-2007039382

PATIENT
  Sex: Male

DRUGS (4)
  1. LYRICA [Suspect]
     Dosage: DAILY DOSE:150MG
     Route: 048
     Dates: start: 20060116, end: 20061124
  2. ALVEDON [Suspect]
     Dosage: DAILY DOSE:4GRAM
     Route: 048
     Dates: start: 20061019, end: 20061128
  3. TRAMADOL HCL [Concomitant]
     Dates: start: 20061019, end: 20061101
  4. DEXTROPROPOXIFEN [Concomitant]
     Route: 048

REACTIONS (17)
  - ALANINE AMINOTRANSFERASE INCREASED [None]
  - ASPARTATE AMINOTRANSFERASE INCREASED [None]
  - BLOOD BILIRUBIN INCREASED [None]
  - BLOOD LACTATE DEHYDROGENASE INCREASED [None]
  - CHROMATURIA [None]
  - CONSTIPATION [None]
  - DECREASED APPETITE [None]
  - DRUG TOXICITY [None]
  - GALLBLADDER DISORDER [None]
  - INTERNATIONAL NORMALISED RATIO INCREASED [None]
  - NAUSEA [None]
  - OCULAR ICTERUS [None]
  - OEDEMA [None]
  - PYREXIA [None]
  - TRANSAMINASES INCREASED [None]
  - VERTIGO [None]
  - VOMITING [None]
